FAERS Safety Report 8020910-6 (Version None)
Quarter: 2011Q4

REPORT INFORMATION
  Report Type: 
  Country: None (occurrence: None)
  Receive Date: 20111229
  Receipt Date: 20111229
  Transmission Date: 20120403
  Serious: Yes (Hospitalization)
  Sender: FDA-Public Use
  Company Number: None

PATIENT
  Age: 46 Year
  Sex: Male
  Weight: 112.9 kg

DRUGS (1)
  1. METHYLPHENIDATE [Suspect]
     Dosage: 5 MG TID PO
     Route: 048
     Dates: start: 20110713, end: 20110729

REACTIONS (1)
  - ANGINA PECTORIS [None]
